FAERS Safety Report 20949547 (Version 1)
Quarter: 2022Q2

REPORT INFORMATION
  Report Type: Spontaneous
  Country: US (occurrence: US)
  Receive Date: 20220613
  Receipt Date: 20220613
  Transmission Date: 20220721
  Serious: Yes (Other)
  Sender: FDA-Public Use
  Company Number: US-BRISTOL-MYERS SQUIBB COMPANY-2022-051044

PATIENT
  Age: 70 Year
  Sex: Male
  Weight: 83.461 kg

DRUGS (1)
  1. REVLIMID [Suspect]
     Active Substance: LENALIDOMIDE
     Indication: Follicular lymphoma
     Dosage: 21 OF A 28 DAY CYCLE
     Route: 048
     Dates: start: 20220106

REACTIONS (1)
  - Heart valve incompetence [Unknown]
